FAERS Safety Report 14652645 (Version 1)
Quarter: 2018Q1

REPORT INFORMATION
  Report Type: Spontaneous
  Country: OM (occurrence: OM)
  Receive Date: 20180319
  Receipt Date: 20180319
  Transmission Date: 20180509
  Serious: Yes (Other)
  Sender: FDA-Public Use
  Company Number: OM-ACCORD-064306

PATIENT
  Sex: Male

DRUGS (7)
  1. BLEOMYCIN [Suspect]
     Active Substance: BLEOMYCIN SULFATE
     Indication: EXTRAGONADAL PRIMARY NON-SEMINOMA
  2. GEMCITABINE [Suspect]
     Active Substance: GEMCITABINE\GEMCITABINE HYDROCHLORIDE
     Indication: EXTRAGONADAL PRIMARY NON-SEMINOMA
     Dates: start: 2010
  3. ETOPOSIDE. [Suspect]
     Active Substance: ETOPOSIDE
     Indication: EXTRAGONADAL PRIMARY NON-SEMINOMA
  4. CARBOPLATIN. [Suspect]
     Active Substance: CARBOPLATIN
     Indication: EXTRAGONADAL PRIMARY NON-SEMINOMA
     Dosage: 3 WEEKLY
  5. PACLITAXEL/PACLITAXEL LIPOSOME [Suspect]
     Active Substance: PACLITAXEL
     Indication: EXTRAGONADAL PRIMARY NON-SEMINOMA
     Dosage: 3 WEEKLY
  6. OXALIPLATIN. [Suspect]
     Active Substance: OXALIPLATIN
     Indication: EXTRAGONADAL PRIMARY NON-SEMINOMA
     Dates: start: 2010
  7. CISPLATIN. [Suspect]
     Active Substance: CISPLATIN
     Indication: EXTRAGONADAL PRIMARY NON-SEMINOMA

REACTIONS (2)
  - Tumour necrosis [None]
  - Osteonecrosis [Recovered/Resolved]

NARRATIVE: CASE EVENT DATE: 201202
